FAERS Safety Report 9125257 (Version 2)
Quarter: 2013Q2

REPORT INFORMATION
  Report Type: Spontaneous
  Country: US (occurrence: US)
  Receive Date: 20130227
  Receipt Date: 20130508
  Transmission Date: 20140414
  Serious: Yes (Other)
  Sender: FDA-Public Use
  Company Number: US-JNJFOC-20130212809

PATIENT
  Age: 40 Year
  Sex: Female
  Weight: 109.32 kg

DRUGS (7)
  1. REMICADE [Suspect]
     Indication: COLITIS ULCERATIVE
     Dosage: APPROXIMATELY 14 INFUSIONS
     Route: 042
     Dates: end: 20130220
  2. REMICADE [Suspect]
     Indication: COLITIS ULCERATIVE
     Dosage: 4TH INFUSION
     Route: 042
     Dates: start: 20111026
  3. REMICADE [Suspect]
     Indication: COLITIS ULCERATIVE
     Dosage: 4TH INFUSION
     Route: 042
     Dates: start: 20110831
  4. REMICADE [Suspect]
     Indication: COLITIS ULCERATIVE
     Route: 042
     Dates: start: 20110314
  5. TYLENOL [Concomitant]
     Indication: PREMEDICATION
     Route: 048
     Dates: start: 20110314
  6. SOLU MEDROL [Concomitant]
     Indication: PREMEDICATION
     Route: 042
     Dates: start: 20111026
  7. BENADRYL [Concomitant]
     Indication: PREMEDICATION
     Route: 042
     Dates: start: 20111026

REACTIONS (12)
  - Infusion related reaction [Recovered/Resolved]
  - Abdominal pain lower [Recovered/Resolved]
  - Vomiting [Recovered/Resolved]
  - Pharyngeal disorder [Recovered/Resolved]
  - Throat tightness [Recovered/Resolved]
  - Hypertension [Recovered/Resolved]
  - Back pain [Recovered/Resolved]
  - Arthralgia [Recovered/Resolved]
  - Flushing [Recovered/Resolved]
  - Nausea [Recovered/Resolved]
  - Diarrhoea [Recovered/Resolved]
  - Myalgia [Recovered/Resolved]
